FAERS Safety Report 4389309-8 (Version None)
Quarter: 2004Q3

REPORT INFORMATION
  Report Type: 
  Country: None (occurrence: None)
  Receive Date: 20040702
  Receipt Date: 20040604
  Transmission Date: 20050211
  Serious: Yes (Hospitalization)
  Sender: FDA-Public Use
  Company Number: JP-ROCHE-369891

PATIENT
  Age: 66 Year
  Sex: Female
  Weight: 53 kg

DRUGS (6)
  1. PANALDINE [Suspect]
     Indication: CEREBRAL INFARCTION
     Route: 048
     Dates: start: 20040522, end: 20040527
  2. CATACLOT [Suspect]
     Indication: CEREBRAL INFARCTION
     Route: 041
     Dates: start: 20040522, end: 20040527
  3. RADICUT [Suspect]
     Indication: CEREBRAL INFARCTION
     Route: 041
     Dates: start: 20040522, end: 20040527
  4. NITRODERM [Concomitant]
     Route: 061
     Dates: start: 20040522, end: 20040527
  5. PRIMPERAN INJ [Concomitant]
     Route: 041
     Dates: start: 20040522, end: 20040527
  6. BLOPRESS [Concomitant]
     Indication: HYPERTENSION
     Route: 048
     Dates: start: 20040526, end: 20040527

REACTIONS (3)
  - PYREXIA [None]
  - RENAL DISORDER [None]
  - THROMBOCYTOPENIA [None]
